FAERS Safety Report 4832659-9 (Version None)
Quarter: 2005Q4

REPORT INFORMATION
  Report Type: 
  Country: None (occurrence: None)
  Receive Date: 20051117
  Receipt Date: 20051108
  Transmission Date: 20060501
  Serious: Yes (Disabling, Other)
  Sender: FDA-Public Use
  Company Number: 2005-09-0293

PATIENT
  Age: 58 Year
  Sex: Female
  Weight: 107.9561 kg

DRUGS (2)
  1. CELESTONE SOLUSPAN [Suspect]
     Dosage: 2MG
     Dates: start: 20030715
  2. COUMADIN [Concomitant]

REACTIONS (9)
  - ABASIA [None]
  - ANAPHYLACTIC REACTION [None]
  - CONDITION AGGRAVATED [None]
  - EMOTIONAL DISTRESS [None]
  - OEDEMA PERIPHERAL [None]
  - PAIN [None]
  - PAIN IN EXTREMITY [None]
  - POLYTRAUMATISM [None]
  - THROMBOSIS [None]
